FAERS Safety Report 10255708 (Version 2)
Quarter: 2014Q3

REPORT INFORMATION
  Report Type: Spontaneous
  Country: FR (occurrence: FR)
  Receive Date: 20140624
  Receipt Date: 20140707
  Transmission Date: 20150326
  Serious: Yes (Death, Hospitalization)
  Sender: FDA-Public Use
  Company Number: PHHY2014FR077558

PATIENT
  Age: 31 Year
  Sex: Female

DRUGS (10)
  1. OXAZEPAM. [Concomitant]
     Active Substance: OXAZEPAM
     Dosage: 50 MG, TID (0.5 MG)
     Route: 048
     Dates: start: 20140531, end: 20140616
  2. LAMICTAL [Concomitant]
     Active Substance: LAMOTRIGINE
     Dosage: 50 MG, BID
     Route: 048
  3. LEPONEX [Suspect]
     Active Substance: CLOZAPINE
     Dosage: 400 MG, DAILY
     Route: 048
     Dates: start: 20140607, end: 20140616
  4. LEPONEX [Suspect]
     Active Substance: CLOZAPINE
     Indication: SCHIZOPHRENIA
     Dosage: 250 MG DAILY
     Route: 048
  5. LEPTICUR [Suspect]
     Active Substance: TROPATEPINE HYDROCHLORIDE
     Dosage: 10 MG, BID
     Route: 048
     Dates: start: 20140531, end: 20140615
  6. ABILIFY [Suspect]
     Active Substance: ARIPIPRAZOLE
     Dosage: 10 MG, BID
     Route: 048
     Dates: start: 20140501, end: 20140615
  7. LEPONEX [Suspect]
     Active Substance: CLOZAPINE
     Indication: PSYCHOTIC DISORDER
     Dosage: 350 MG, DAILY
     Route: 048
     Dates: start: 20140531, end: 20140606
  8. LOXAPAC [Suspect]
     Active Substance: LOXAPINE SUCCINATE
     Dosage: 25 MG, TID
     Route: 048
     Dates: start: 20140605, end: 20140615
  9. TRANSIPEG [Concomitant]
     Active Substance: POLYETHYLENE GLYCOL 3350
     Dosage: 2 DF,  DAILY
     Route: 048
     Dates: start: 20140531
  10. FLOXYFRAL [Concomitant]
     Active Substance: FLUVOXAMINE
     Dosage: 100 MG, DAILY
     Route: 048
     Dates: start: 20140528, end: 20140604

REACTIONS (3)
  - Intestinal obstruction [Fatal]
  - Coma [Fatal]
  - Lactic acidosis [Fatal]

NARRATIVE: CASE EVENT DATE: 20140616
